FAERS Safety Report 4518483-5 (Version None)
Quarter: 2004Q4

REPORT INFORMATION
  Report Type: 
  Country: None (occurrence: None)
  Receive Date: 20041202
  Receipt Date: 20041122
  Transmission Date: 20050328
  Serious: Yes (Hospitalization, Other)
  Sender: FDA-Public Use
  Company Number: HQWYE907110NOV03

PATIENT
  Age: 52 Year
  Sex: Female

DRUGS (4)
  1. PREMPRO [Suspect]
     Indication: HORMONE REPLACEMENT THERAPY
     Dosage: 1 TABLET DAILY; ORAL
     Route: 048
     Dates: start: 19960101, end: 20010504
  2. GLUCOVANCE [Concomitant]
  3. VITAMINS (VITAMINS) [Concomitant]
  4. PREMARIN [Suspect]
     Indication: OESTROGEN REPLACEMENT THERAPY
     Dosage: DAILY,ORAL
     Route: 048
     Dates: start: 20010505, end: 20011112

REACTIONS (6)
  - BREAST CANCER [None]
  - CHOLECYSTITIS [None]
  - CHOLELITHIASIS [None]
  - EYE HAEMORRHAGE [None]
  - OVARIAN CYST [None]
  - UTERINE LEIOMYOMA [None]
